FAERS Safety Report 5624091-5 (Version None)
Quarter: 2008Q1

REPORT INFORMATION
  Report Type: 
  Country: None (occurrence: None)
  Receive Date: 20080213
  Receipt Date: 20070824
  Transmission Date: 20080703
  Serious: No
  Sender: FDA-Public Use
  Company Number: US-KINGPHARMUSA00001-K200701100

PATIENT

DRUGS (3)
  1. EPIPEN JR. [Suspect]
     Dates: start: 20070801, end: 20070801
  2. HEART MEDS [Concomitant]
     Indication: CARDIAC DISORDER
  3. BLOOD PRESSURE MEDS [Concomitant]
     Indication: BLOOD PRESSURE ABNORMAL

REACTIONS (1)
  - INJURY [None]
